FAERS Safety Report 24121052 (Version 3)
Quarter: 2024Q3

REPORT INFORMATION
  Report Type: Spontaneous
  Country: US (occurrence: US)
  Receive Date: 20240722
  Receipt Date: 20240923
  Transmission Date: 20241016
  Serious: No
  Sender: PFIZER
  Company Number: US-PFIZER INC-202400220011

PATIENT
  Age: 10 Year
  Sex: Female

DRUGS (2)
  1. OXBRYTA [Suspect]
     Active Substance: VOXELOTOR
     Dosage: 900 MG, 1X/DAY (300 MG, 3 TABLETS ONCE DAILY)
     Route: 048
  2. OXBRYTA [Suspect]
     Active Substance: VOXELOTOR
     Dosage: 900 MG, 1X/DAY (300 MG, 3 TABLETS ONCE DAILY)
     Route: 048
     Dates: start: 202405

REACTIONS (2)
  - Hepatic enzyme increased [Recovered/Resolved]
  - Blood bilirubin decreased [Not Recovered/Not Resolved]
